FAERS Safety Report 7068522-5 (Version None)
Quarter: 2010Q4

REPORT INFORMATION
  Report Type: 
  Country: None (occurrence: None)
  Receive Date: 20101028
  Receipt Date: 20101020
  Transmission Date: 20110411
  Serious: Yes (Life-Threatening, Hospitalization)
  Sender: FDA-Public Use
  Company Number: JP-SANOFI-AVENTIS-2010SA044620

PATIENT
  Age: 61 Year
  Sex: Female
  Weight: 47 kg

DRUGS (11)
  1. AMARYL [Suspect]
     Indication: TYPE 2 DIABETES MELLITUS
     Dosage: DOSAGE UNKNOWN
     Route: 048
     Dates: start: 20100519, end: 20100607
  2. PROPACIL [Suspect]
     Indication: BASEDOW'S DISEASE
     Route: 048
     Dates: start: 20100617, end: 20100621
  3. MERCAZOLE [Suspect]
     Indication: BASEDOW'S DISEASE
     Route: 048
     Dates: start: 20100324, end: 20100616
  4. 8-HOUR BAYER [Concomitant]
     Indication: ANGINA PECTORIS
     Route: 048
     Dates: start: 20040101, end: 20100621
  5. ARTIST [Concomitant]
     Indication: ANGINA PECTORIS
     Route: 048
     Dates: end: 20100621
  6. LASIX [Concomitant]
     Indication: ANGINA PECTORIS
     Route: 048
     Dates: end: 20100621
  7. DIOVAN [Concomitant]
     Route: 048
     Dates: start: 20040101, end: 20100621
  8. NORVASC [Concomitant]
     Indication: HYPERTENSION
     Route: 048
     Dates: start: 20040101, end: 20100621
  9. RENIVACE [Concomitant]
     Indication: HYPERTENSION
     Route: 048
     Dates: start: 20040101, end: 20100621
  10. CRESTOR [Concomitant]
     Indication: HYPERLIPIDAEMIA
     Route: 048
     Dates: end: 20100621
  11. POTASSIUM IODIDE [Concomitant]
     Indication: BASEDOW'S DISEASE
     Route: 048
     Dates: start: 20100324

REACTIONS (1)
  - STEVENS-JOHNSON SYNDROME [None]
